FAERS Safety Report 7990896-9 (Version None)
Quarter: 2011Q4

REPORT INFORMATION
  Report Type: 
  Country: None (occurrence: None)
  Receive Date: 20111219
  Receipt Date: 20111201
  Transmission Date: 20120403
  Serious: Yes (Hospitalization)
  Sender: FDA-Public Use
  Company Number: IE-ROCHE-1013963

PATIENT
  Sex: Male
  Weight: 127.12 kg

DRUGS (1)
  1. XOLAIR [Suspect]
     Indication: ASTHMA
     Route: 065

REACTIONS (5)
  - OEDEMA PERIPHERAL [None]
  - MALAISE [None]
  - CHEST DISCOMFORT [None]
  - ASTHMA [None]
  - CHEST PAIN [None]
